FAERS Safety Report 18744893 (Version 1)
Quarter: 2021Q1

REPORT INFORMATION
  Report Type: Spontaneous
  Country: US (occurrence: US)
  Receive Date: 20210115
  Receipt Date: 20210115
  Transmission Date: 20210419
  Serious: Yes (Other)
  Sender: FDA-Public Use
  Company Number: US-JNJFOC-20210113314

PATIENT
  Sex: Female
  Weight: 62.65 kg

DRUGS (4)
  1. REVATIO [Concomitant]
     Active Substance: SILDENAFIL CITRATE
  2. BOSENTAN. [Concomitant]
     Active Substance: BOSENTAN
     Indication: PULMONARY ARTERIAL HYPERTENSION
     Route: 048
     Dates: start: 20200303
  3. XARELTO [Suspect]
     Active Substance: RIVAROXABAN
     Indication: PRODUCT USED FOR UNKNOWN INDICATION
     Route: 048
  4. UPTRAVI [Concomitant]
     Active Substance: SELEXIPAG

REACTIONS (9)
  - Cataract [Recovered/Resolved]
  - Gastrooesophageal reflux disease [Unknown]
  - Cardiac failure congestive [Unknown]
  - Rectal haemorrhage [Recovered/Resolved]
  - Arthralgia [Recovered/Resolved]
  - Sinusitis [Recovered/Resolved]
  - Contusion [Unknown]
  - Chronic obstructive pulmonary disease [Unknown]
  - Weight decreased [Recovered/Resolved]

NARRATIVE: CASE EVENT DATE: 2020
